FAERS Safety Report 6089557-5 (Version None)
Quarter: 2009Q1

REPORT INFORMATION
  Report Type: 
  Country: None (occurrence: None)
  Receive Date: 20090224
  Receipt Date: 20090210
  Transmission Date: 20090719
  Serious: Yes (Death)
  Sender: FDA-Public Use
  Company Number: ES-GENENTECH-277473

PATIENT
  Age: 50 Year
  Sex: Female

DRUGS (5)
  1. AVASTIN [Suspect]
     Indication: COLON CANCER
     Dosage: UNK UNK, UNKNOWN
     Route: 065
     Dates: start: 20080101
  2. FLUOROURACIL [Concomitant]
     Indication: COLON CANCER
     Dosage: UNK UNK, UNKNOWN
     Route: 065
  3. FOLINIC ACID [Concomitant]
     Indication: COLON CANCER
     Dosage: UNK U, UNKNOWN
     Route: 065
  4. IRINOTECAN HCL [Concomitant]
     Indication: COLON CANCER
     Dosage: UNK UNK, UNKNOWN
     Route: 065
  5. OXALIPLATIN [Concomitant]
     Indication: COLON CANCER
     Dosage: UNK UNK, UNKNOWN
     Route: 065

REACTIONS (1)
  - PERITONITIS BACTERIAL [None]
